FAERS Safety Report 7425624-9 (Version None)
Quarter: 2011Q2

REPORT INFORMATION
  Report Type: 
  Country: None (occurrence: None)
  Receive Date: 20110420
  Receipt Date: 20110414
  Transmission Date: 20111010
  Serious: Yes (Hospitalization)
  Sender: FDA-Public Use
  Company Number: US-B.I. PHARMACEUTICALS,INC./RIDGEFIELD-2011-BP-01740BP

PATIENT
  Age: 64 Year
  Sex: Female

DRUGS (18)
  1. PRADAXA [Suspect]
     Indication: ATRIAL FIBRILLATION
     Dosage: 300 MG
     Dates: start: 20110104
  2. MULTIPLE VITAMIN [Concomitant]
     Indication: VITAMIN SUPPLEMENTATION
  3. DIGOXIN [Concomitant]
     Indication: CARDIAC DISORDER
  4. DIOVAN [Concomitant]
     Indication: CARDIAC DISORDER
  5. LIPITOR [Concomitant]
     Indication: BLOOD CHOLESTEROL INCREASED
  6. QVAR 40 [Concomitant]
     Indication: ASTHMA
  7. BYSTOLIC [Concomitant]
     Indication: CARDIAC DISORDER
  8. VITAMIN D [Concomitant]
     Indication: VITAMIN D DEFICIENCY
     Dosage: 1000 U
  9. PROLIA [Concomitant]
     Indication: BONE DENSITY ABNORMAL
  10. CALCIUM WITH VITAMIN D [Concomitant]
     Indication: BONE DENSITY ABNORMAL
  11. QVAR 40 [Concomitant]
     Indication: CHRONIC OBSTRUCTIVE PULMONARY DISEASE
  12. CALCIUM WITH VITAMIN D [Concomitant]
     Indication: VITAMIN D DEFICIENCY
  13. VITAMIN B COMPLEX CAP [Concomitant]
     Indication: VITAMIN SUPPLEMENTATION
  14. VITAMIN D [Concomitant]
     Dates: start: 20101201, end: 20101201
  15. MAXAIR [Concomitant]
     Indication: CHRONIC OBSTRUCTIVE PULMONARY DISEASE
  16. FLONASE [Concomitant]
     Indication: MULTIPLE ALLERGIES
  17. IPRATROPIUM HBR [Concomitant]
     Indication: MULTIPLE ALLERGIES
  18. SPIRIVA [Suspect]
     Indication: CHRONIC OBSTRUCTIVE PULMONARY DISEASE
     Dosage: 18 MCG
     Route: 055

REACTIONS (3)
  - BLOOD PRESSURE SYSTOLIC INCREASED [None]
  - ATRIAL FIBRILLATION [None]
  - HEART RATE INCREASED [None]
